FAERS Safety Report 25241750 (Version 1)
Quarter: 2025Q2

REPORT INFORMATION
  Report Type: Spontaneous
  Country: PT (occurrence: PT)
  Receive Date: 20250426
  Receipt Date: 20250426
  Transmission Date: 20250717
  Serious: Yes (Hospitalization)
  Sender: AUROBINDO
  Company Number: PT-ORESUND-25OPAJY0271P

PATIENT
  Age: 39 Year
  Sex: Female

DRUGS (6)
  1. PREDNISOLONE [Suspect]
     Active Substance: PREDNISOLONE
     Indication: Mastitis
     Dosage: 30 MILLIGRAM, ONCE A DAY (30 MG PER DAY)
     Route: 065
  2. METHOTREXATE [Suspect]
     Active Substance: METHOTREXATE
     Indication: Plasma cell mastitis
     Dosage: 5 MILLIGRAM, EVERY WEEK (5 MG ONCE PER WEEK)
     Route: 065
  3. METHOTREXATE [Suspect]
     Active Substance: METHOTREXATE
     Dosage: 10 MILLIGRAM, EVERY WEEK (10 MG ONCE PER WEEK)
     Route: 065
  4. AMOXICILLIN [Concomitant]
     Active Substance: AMOXICILLIN
     Indication: Product used for unknown indication
     Route: 065
  5. CLINDAMYCIN [Concomitant]
     Active Substance: CLINDAMYCIN
     Indication: Product used for unknown indication
     Route: 065
  6. PIPERACILLIN AND TAZOBACTAM [Concomitant]
     Active Substance: PIPERACILLIN SODIUM\TAZOBACTAM SODIUM
     Indication: Product used for unknown indication
     Route: 065

REACTIONS (6)
  - Abscess drainage [Recovering/Resolving]
  - Subcutaneous abscess [Recovering/Resolving]
  - Fistula [Recovering/Resolving]
  - Therapy change [Unknown]
  - Drug ineffective [Unknown]
  - Off label use [Unknown]
